FAERS Safety Report 16721766 (Version 1)
Quarter: 2019Q3

REPORT INFORMATION
  Report Type: Spontaneous
  Country: CA (occurrence: CA)
  Receive Date: 20190820
  Receipt Date: 20190820
  Transmission Date: 20191005
  Serious: Yes (Other)
  Sender: FDA-Public Use
  Company Number: CA-TEVA-2019-CA-1093835

PATIENT
  Age: 59 Year
  Sex: Female

DRUGS (7)
  1. ARAVA [Suspect]
     Active Substance: LEFLUNOMIDE
     Indication: PRODUCT USED FOR UNKNOWN INDICATION
     Route: 065
  2. ENBREL [Suspect]
     Active Substance: ETANERCEPT
     Indication: RHEUMATOID ARTHRITIS
     Route: 065
  3. HYDROXYCHLOROQUINE SULFATE. [Suspect]
     Active Substance: HYDROXYCHLOROQUINE SULFATE
     Indication: PRODUCT USED FOR UNKNOWN INDICATION
     Route: 065
  4. PREDNISONE. [Suspect]
     Active Substance: PREDNISONE
     Indication: PRODUCT USED FOR UNKNOWN INDICATION
     Route: 065
  5. METHOTREXATE. [Suspect]
     Active Substance: METHOTREXATE
     Indication: RHEUMATOID ARTHRITIS
     Route: 065
  6. HUMIRA [Suspect]
     Active Substance: ADALIMUMAB
     Indication: PRODUCT USED FOR UNKNOWN INDICATION
     Route: 058
  7. ORENCIA [Suspect]
     Active Substance: ABATACEPT
     Indication: PRODUCT USED FOR UNKNOWN INDICATION
     Route: 065

REACTIONS (15)
  - Hepatic enzyme increased [Unknown]
  - Rheumatoid factor positive [Unknown]
  - Arthropathy [Unknown]
  - Drug intolerance [Unknown]
  - Pain in extremity [Unknown]
  - Arthralgia [Unknown]
  - Dyspepsia [Unknown]
  - Gait disturbance [Unknown]
  - Migraine [Unknown]
  - Mobility decreased [Unknown]
  - X-ray abnormal [Unknown]
  - Contraindicated product administered [Unknown]
  - Nausea [Unknown]
  - Synovitis [Unknown]
  - Vomiting [Unknown]
